FAERS Safety Report 6306583-9 (Version None)
Quarter: 2009Q3

REPORT INFORMATION
  Report Type: 
  Country: None (occurrence: None)
  Receive Date: 20090812
  Receipt Date: 20090805
  Transmission Date: 20100115
  Serious: Yes (Hospitalization)
  Sender: FDA-Public Use
  Company Number: A0795252A

PATIENT
  Age: 67 Year
  Sex: Female
  Weight: 52.3 kg

DRUGS (6)
  1. IMITREX [Suspect]
     Indication: MIGRAINE
     Dosage: 6MG AS REQUIRED
     Route: 058
  2. IMITREX [Suspect]
     Dosage: 50MG AS REQUIRED
     Route: 048
  3. TOPAMAX [Concomitant]
  4. MULTI-VITAMIN [Concomitant]
  5. OTHER MEDICATIONS [Concomitant]
  6. REQUIP [Concomitant]

REACTIONS (2)
  - DRUG INEFFECTIVE [None]
  - SOMNOLENCE [None]
